FAERS Safety Report 10725656 (Version 4)
Quarter: 2015Q2

REPORT INFORMATION
  Report Type: Report from Study
  Country: US (occurrence: US)
  Receive Date: 20150121
  Receipt Date: 20150507
  Transmission Date: 20150821
  Serious: Yes (Hospitalization, Other)
  Sender: FDA-Public Use
  Company Number: US-BIOGENIDEC-2015BI005457

PATIENT
  Age: 52 Year
  Sex: Male

DRUGS (1)
  1. TYSABRI [Suspect]
     Active Substance: NATALIZUMAB
     Indication: MULTIPLE SCLEROSIS
     Route: 042
     Dates: start: 20100222

REACTIONS (6)
  - Spinal disorder [Recovered/Resolved]
  - Acute kidney injury [Recovered/Resolved]
  - Surgery [Recovered/Resolved]
  - Urinary tract infection [Recovered/Resolved]
  - Infection [Not Recovered/Not Resolved]
  - Drug dose omission [Not Recovered/Not Resolved]

NARRATIVE: CASE EVENT DATE: 201412
